FAERS Safety Report 13754874 (Version 5)
Quarter: 2018Q1

REPORT INFORMATION
  Report Type: Spontaneous
  Country: US (occurrence: US)
  Receive Date: 20170714
  Receipt Date: 20180205
  Transmission Date: 20180508
  Serious: Yes (Hospitalization, Other)
  Sender: FDA-Public Use
  Company Number: US-BAUSCH-BL-2017-021156

PATIENT
  Age: 63 Year
  Sex: Female
  Weight: 98.06 kg

DRUGS (2)
  1. CUPRIMINE [Suspect]
     Active Substance: PENICILLAMINE
     Indication: CHRONIC KIDNEY DISEASE
  2. CUPRIMINE [Suspect]
     Active Substance: PENICILLAMINE
     Indication: NEPHROLITHIASIS
     Dosage: ON AN EMPTY STOMACH?STARTED 2 YEARS AGO
     Route: 048
     Dates: start: 1977

REACTIONS (6)
  - Cardiac failure congestive [Unknown]
  - Influenza [Unknown]
  - Hypertension [Not Recovered/Not Resolved]
  - Anticoagulation drug level above therapeutic [Recovered/Resolved]
  - Diabetes mellitus [Not Recovered/Not Resolved]
  - Off label use [Not Recovered/Not Resolved]

NARRATIVE: CASE EVENT DATE: 1977
